FAERS Safety Report 5315675-2 (Version None)
Quarter: 2007Q2

REPORT INFORMATION
  Report Type: 
  Country: None (occurrence: None)
  Receive Date: 20070503
  Receipt Date: 20070419
  Transmission Date: 20071010
  Serious: Yes (Hospitalization)
  Sender: FDA-Public Use
  Company Number: US-KINGPHARMUSA00001-K200700497

PATIENT

DRUGS (1)
  1. LEVOXYL [Suspect]
     Indication: HYPOTHYROIDISM
     Dosage: 75 MCG, UNK
     Route: 048
     Dates: start: 20051205, end: 20070415

REACTIONS (14)
  - ANXIETY [None]
  - BACK PAIN [None]
  - BLOOD PRESSURE INCREASED [None]
  - COLD SWEAT [None]
  - FEELING COLD [None]
  - HOT FLUSH [None]
  - HYPERHIDROSIS [None]
  - HYPERTHYROIDISM [None]
  - HYPERVENTILATION [None]
  - NAUSEA [None]
  - OESOPHAGEAL PAIN [None]
  - OESOPHAGEAL SPASM [None]
  - PAIN IN JAW [None]
  - PSYCHOMOTOR HYPERACTIVITY [None]
